FAERS Safety Report 8444978 (Version 4)
Quarter: 2013Q3

REPORT INFORMATION
  Report Type: Spontaneous
  Country: US (occurrence: None)
  Receive Date: 20120223
  Receipt Date: 20130815
  Transmission Date: 20140515
  Serious: Yes (Other)
  Sender: FDA-Public Use
  Company Number: ADR-2012-00119

PATIENT
  Sex: Male

DRUGS (2)
  1. LIORESAL [Suspect]
     Indication: MUSCLE SPASTICITY
  2. LIORESAL [Suspect]
     Indication: MULTIPLE SCLEROSIS

REACTIONS (9)
  - Infection [None]
  - Device related infection [None]
  - Erythema [None]
  - Swelling [None]
  - Pain [None]
  - Implant site erythema [None]
  - Implant site infection [None]
  - Staphylococcus test positive [None]
  - Implant site discharge [None]
